FAERS Safety Report 10166866 (Version 1)
Quarter: 2014Q2

REPORT INFORMATION
  Report Type: Spontaneous
  Country: US (occurrence: US)
  Receive Date: 20140512
  Receipt Date: 20140512
  Transmission Date: 20141212
  Serious: Yes (Other)
  Sender: FDA-Public Use
  Company Number: US-BAYER-2014-066721

PATIENT
  Sex: Female

DRUGS (2)
  1. MIRENA [Suspect]
     Dosage: 20 ?G/D, CONT
     Route: 015
     Dates: start: 201403
  2. YASMIN [Suspect]
     Route: 048

REACTIONS (6)
  - Ovarian cyst ruptured [None]
  - Genital haemorrhage [None]
  - Pain [None]
  - Migraine with aura [None]
  - Amenorrhoea [None]
  - Amenorrhoea [None]
